FAERS Safety Report 19774991 (Version 1)
Quarter: 2021Q3

REPORT INFORMATION
  Report Type: Spontaneous
  Country: US (occurrence: US)
  Receive Date: 20210901
  Receipt Date: 20210901
  Transmission Date: 20211014
  Serious: Yes (Hospitalization, Other)
  Sender: FDA-Public Use
  Company Number: US-INDIVIOR EUROPE LIMITED-INDV-130933-2021

PATIENT
  Age: 11 Year
  Sex: Female

DRUGS (53)
  1. HYDROMORPHONE [Concomitant]
     Active Substance: HYDROMORPHONE
     Dosage: 32 MILLIGRAM (ON ADMISSION DAY 9)
     Route: 048
  2. HYDROMORPHONE [Concomitant]
     Active Substance: HYDROMORPHONE
     Dosage: 16 MILLIGRAM (ON ADMISSION DAY 26)
     Route: 048
  3. BUPRENORPHINE/NALOXONE 2 MG FILM [Suspect]
     Active Substance: BUPRENORPHINE\NALOXONE
     Dosage: 2 MILLIGRAM, TID (ADMISSION DAY 06)
     Route: 060
  4. BUPRENORPHINE/NALOXONE 2 MG FILM [Suspect]
     Active Substance: BUPRENORPHINE\NALOXONE
     Dosage: 2 MILLIGRAM, QID (ADMISSION DAY 08)
     Route: 060
  5. BUPRENORPHINE/NALOXONE 2 MG FILM [Suspect]
     Active Substance: BUPRENORPHINE\NALOXONE
     Dosage: 2 MILLIGRAM, QID (ADMISSION DAY 11)
     Route: 060
  6. BUPRENORPHINE/NALOXONE 2 MG FILM [Suspect]
     Active Substance: BUPRENORPHINE\NALOXONE
     Dosage: 2 MILLIGRAM, QID (ADMISSION DAY 17)
     Route: 060
  7. BUPRENORPHINE/NALOXONE 2 MG FILM [Suspect]
     Active Substance: BUPRENORPHINE\NALOXONE
     Dosage: 2 MILLIGRAM, QID (ADMISSION DAY 18)
     Route: 060
  8. HYDROMORPHONE [Concomitant]
     Active Substance: HYDROMORPHONE
     Dosage: 36 MILLIGRAM (ON ADMISSION DAY 12)
     Route: 048
  9. HYDROMORPHONE [Concomitant]
     Active Substance: HYDROMORPHONE
     Dosage: 42 MILLIGRAM (ON ADMISSION DAY 22)
     Route: 048
  10. HYDROMORPHONE [Concomitant]
     Active Substance: HYDROMORPHONE
     Dosage: 16 MILLLIGRAM (ON ADMISSION DAY 28)
     Route: 048
  11. BUPRENORPHINE/NALOXONE 2 MG FILM [Suspect]
     Active Substance: BUPRENORPHINE\NALOXONE
     Dosage: 2 MILLIGRAM (ADMISSION DAY 4)
     Route: 060
  12. BUPRENORPHINE/NALOXONE 2 MG FILM [Suspect]
     Active Substance: BUPRENORPHINE\NALOXONE
     Dosage: 2 MILLIGRAM, QID (ADMISSION DAY 19)
     Route: 060
  13. BUPRENORPHINE/NALOXONE 2 MG FILM [Suspect]
     Active Substance: BUPRENORPHINE\NALOXONE
     Dosage: 3 MILLIGRAM, QID (ADMISSION DAY 21)
     Route: 060
  14. BUPRENORPHINE/NALOXONE 2 MG FILM [Suspect]
     Active Substance: BUPRENORPHINE\NALOXONE
     Dosage: 2 MILLIGRAM, TID (ADMISSION DAY 22)
     Route: 060
  15. IBUPROFEN. [Concomitant]
     Active Substance: IBUPROFEN
     Indication: PAIN
     Dosage: 300 MILLIGRAM, QID
     Route: 048
  16. IBUPROFEN. [Concomitant]
     Active Substance: IBUPROFEN
     Dosage: 600 MILLIGRAM, TID (PRN)
     Route: 048
  17. HYDROMORPHONE [Concomitant]
     Active Substance: HYDROMORPHONE
     Dosage: 2.256 UNK (ON ADMISSION DAY 8)
     Route: 042
  18. HYDROMORPHONE [Concomitant]
     Active Substance: HYDROMORPHONE
     Dosage: 38 MILLIGRAM (ON ADMISSION DAY 17)
     Route: 048
  19. HYDROMORPHONE [Concomitant]
     Active Substance: HYDROMORPHONE
     Dosage: 42 MILLIGRAM (ON ADMISSION DAY 21)
     Route: 048
  20. HYDROMORPHONE [Concomitant]
     Active Substance: HYDROMORPHONE
     Dosage: 11 MILLIGRAM (ON ADMISSION DAY 29)
     Route: 048
  21. BUPRENORPHINE/NALOXONE 2 MG FILM [Suspect]
     Active Substance: BUPRENORPHINE\NALOXONE
     Dosage: 2 MILLIGRAM (ADMISSION DAY 5)
     Route: 060
  22. ACETAMINOPHEN. [Concomitant]
     Active Substance: ACETAMINOPHEN
     Indication: PAIN
     Dosage: 500 MILLIGRAM, TID
     Route: 048
  23. HYDROMORPHONE [Concomitant]
     Active Substance: HYDROMORPHONE
     Dosage: 34 MILLIGRAM (ON ADMISSION DAY 11)
     Route: 048
  24. HYDROMORPHONE [Concomitant]
     Active Substance: HYDROMORPHONE
     Dosage: 38 MILLIGRAM (ON ADMISSION DAY 18)
     Route: 048
  25. HYDROMORPHONE [Concomitant]
     Active Substance: HYDROMORPHONE
     Dosage: 38 MILLIGRAM (ON ADMISSION DAY 24)
     Route: 048
  26. HYDROMORPHONE [Concomitant]
     Active Substance: HYDROMORPHONE
     Dosage: 26 MILLIGRAM (ON ADMISSION DAY 24)
     Route: 048
  27. HYDROMORPHONE [Concomitant]
     Active Substance: HYDROMORPHONE
     Dosage: 16 MILLIGRAM (ON ADMISSION DAY 27)
     Route: 048
  28. BUPRENORPHINE/NALOXONE 2 MG FILM [Suspect]
     Active Substance: BUPRENORPHINE\NALOXONE
     Indication: PAIN
     Dosage: 0.25 MILLIGRAM, BID (ADMISSION DAY 0)
     Route: 060
  29. BUPRENORPHINE/NALOXONE 2 MG FILM [Suspect]
     Active Substance: BUPRENORPHINE\NALOXONE
     Dosage: 1 MILLIGRAM, BID(ADMISSION DAY 01)
     Route: 060
  30. BUPRENORPHINE/NALOXONE 2 MG FILM [Suspect]
     Active Substance: BUPRENORPHINE\NALOXONE
     Dosage: 2 MILLIGRAM, QID (ADMISSION DAY 13)
     Route: 060
  31. BUPRENORPHINE/NALOXONE 2 MG FILM [Suspect]
     Active Substance: BUPRENORPHINE\NALOXONE
     Dosage: 2 MILLIGRAM, QID (ADMISSION DAY 14)
     Route: 060
  32. BUPRENORPHINE/NALOXONE 2 MG FILM [Suspect]
     Active Substance: BUPRENORPHINE\NALOXONE
     Dosage: 2 MILLIGRAM, QID (ADMISSION DAY 22)
     Route: 060
  33. NORTRIPTYLINE [Concomitant]
     Active Substance: NORTRIPTYLINE
     Indication: PAIN
     Dosage: 30 MILLIGRAM AT BED TIME
     Route: 065
  34. HYDROMORPHONE [Concomitant]
     Active Substance: HYDROMORPHONE
     Indication: PAIN
     Dosage: 24 MILLIGRAM (ON ADMISSION DAY 5)
     Route: 048
  35. HYDROMORPHONE [Concomitant]
     Active Substance: HYDROMORPHONE
     Dosage: 1.446 MILLIGRAM (ON ADMISSION DAY 7)
     Route: 042
  36. HYDROMORPHONE [Concomitant]
     Active Substance: HYDROMORPHONE
     Dosage: 32 MILLIGRAM (ON ADMISSION DAY 10)
     Route: 048
  37. HYDROMORPHONE [Concomitant]
     Active Substance: HYDROMORPHONE
     Dosage: 40 MILLIGRAM (ON ADMISSION DAY 19)
     Route: 048
  38. HYDROMORPHONE [Concomitant]
     Active Substance: HYDROMORPHONE
     Dosage: 34 MILLIGRAM (ON ADMISSION DAY 23)
  39. BUPRENORPHINE/NALOXONE 2 MG FILM [Suspect]
     Active Substance: BUPRENORPHINE\NALOXONE
     Dosage: 3 MILLIGRAM (ADMISSION DAY 3)
     Route: 060
  40. HYDROMORPHONE [Concomitant]
     Active Substance: HYDROMORPHONE
     Dosage: 14 MILLIGRAM (ON ADMISSION DAY 6)
     Route: 048
  41. HYDROMORPHONE [Concomitant]
     Active Substance: HYDROMORPHONE
     Dosage: 16 MILLIGRAM (ON ADMISSION DAY 8)
     Route: 048
  42. HYDROMORPHONE [Concomitant]
     Active Substance: HYDROMORPHONE
     Dosage: 40 MILLIGRAM (ON ADMISSION DAY 20)
     Route: 048
  43. BUPRENORPHINE/NALOXONE 2 MG FILM [Suspect]
     Active Substance: BUPRENORPHINE\NALOXONE
     Dosage: 2 MILLIGRAM, BID(ADMISSION DAY 02)
     Route: 060
  44. BUPRENORPHINE/NALOXONE 2 MG FILM [Suspect]
     Active Substance: BUPRENORPHINE\NALOXONE
     Dosage: 2 MILLIGRAM, QID (ADMISSION DAY 12)
     Route: 060
  45. BUPRENORPHINE/NALOXONE 2 MG FILM [Suspect]
     Active Substance: BUPRENORPHINE\NALOXONE
     Dosage: 2 MILLIGRAM, QID (ADMISSION DAY 20)
     Route: 060
  46. HYDROMORPHONE [Concomitant]
     Active Substance: HYDROMORPHONE
     Dosage: 1.359 MILLIGRAM (ON ADMISSION DAY 6)
     Route: 042
  47. HYDROMORPHONE [Concomitant]
     Active Substance: HYDROMORPHONE
     Dosage: 36 MILLIGRAM (ON ADMISSION DAY 13)
     Route: 048
  48. HYDROMORPHONE [Concomitant]
     Active Substance: HYDROMORPHONE
     Dosage: 36 MILLIGRAM(ON ADMISSION DAY 14)
     Route: 048
  49. HYDROMORPHONE [Concomitant]
     Active Substance: HYDROMORPHONE
     Dosage: 36 MILLIGRAM  (ON ADMISSION DAY 15)
     Route: 048
  50. BUPRENORPHINE/NALOXONE 2 MG FILM [Suspect]
     Active Substance: BUPRENORPHINE\NALOXONE
     Dosage: 2 MILLIGRAM, TID (ADMISSION DAY 07)
     Route: 060
  51. BUPRENORPHINE/NALOXONE 2 MG FILM [Suspect]
     Active Substance: BUPRENORPHINE\NALOXONE
     Dosage: 2 MILLIGRAM, QID (ADMISSION DAY 10)
     Route: 060
  52. BUPRENORPHINE/NALOXONE 2 MG FILM [Suspect]
     Active Substance: BUPRENORPHINE\NALOXONE
     Dosage: 2 MILLIGRAM, QID (ADMISSION DAY 15)
     Route: 060
  53. BUPRENORPHINE/NALOXONE 2 MG FILM [Suspect]
     Active Substance: BUPRENORPHINE\NALOXONE
     Dosage: 2 MILLIGRAM, QID (ADMISSION DAY 16)
     Route: 060

REACTIONS (6)
  - Drug ineffective for unapproved indication [Recovered/Resolved]
  - Condition aggravated [Unknown]
  - Inappropriate schedule of product administration [Not Recovered/Not Resolved]
  - Sickle cell anaemia with crisis [Unknown]
  - Wrong technique in product usage process [Recovered/Resolved]
  - Off label use [Not Recovered/Not Resolved]
